FAERS Safety Report 21648445 (Version 1)
Quarter: 2022Q4

REPORT INFORMATION
  Report Type: Spontaneous
  Country: US (occurrence: US)
  Receive Date: 20221128
  Receipt Date: 20221128
  Transmission Date: 20230113
  Serious: Yes (Life-Threatening, Disabling, Other)
  Sender: FDA-Public Use
  Company Number: US-ROCHE-1595292

PATIENT
  Age: 74 Year
  Sex: Female

DRUGS (9)
  1. CLONAZEPAM [Suspect]
     Active Substance: CLONAZEPAM
     Indication: Product used for unknown indication
     Dosage: 1 MG, DAILY (FROM MEDICATION LIST / AS NEEDED)
     Route: 048
  2. TAMIFLU [Suspect]
     Active Substance: OSELTAMIVIR PHOSPHATE
     Indication: Psoriatic arthropathy
     Dosage: 45 MG, BID (AS NEEDED IF DEVELOPING SIGNS OR SYMPTOMS OF FLU)
     Route: 048
  3. VALIUM [Suspect]
     Active Substance: DIAZEPAM
     Dosage: 45 MG, BID
     Route: 048
  4. CELLCEPT [Suspect]
     Active Substance: MYCOPHENOLATE MOFETIL
     Indication: Psoriasis
     Dosage: 500 MG, BID
     Route: 048
     Dates: start: 20140822, end: 20160805
  5. CELLCEPT [Suspect]
     Active Substance: MYCOPHENOLATE MOFETIL
     Indication: Psoriasis
     Dosage: 2500 MG, DAILY(1500MG AM AND 1000MG PM)
     Route: 048
  6. CELLCEPT [Suspect]
     Active Substance: MYCOPHENOLATE MOFETIL
     Indication: Psoriasis
     Dosage: 500 MG, BID
     Route: 048
  7. CELLCEPT [Suspect]
     Active Substance: MYCOPHENOLATE MOFETIL
     Indication: Psoriasis
     Dosage: 3 TABLETS IN MORNING AND 2 TABLETS IN EVENING
     Route: 048
  8. CELLCEPT [Suspect]
     Active Substance: MYCOPHENOLATE MOFETIL
     Indication: Psoriasis
     Dosage: 500 MG, BID (CELLCEPT 500MG 3 TABS BID)
     Route: 048
  9. CELLCEPT [Suspect]
     Active Substance: MYCOPHENOLATE MOFETIL
     Indication: Psoriasis
     Dosage: 1500 MG, BID (3 TABS TWICE DAILY)
     Route: 048

REACTIONS (21)
  - Palpitations [Not Recovered/Not Resolved]
  - Arthralgia [Not Recovered/Not Resolved]
  - Loss of consciousness [Unknown]
  - Renal failure [Unknown]
  - Pruritus [Not Recovered/Not Resolved]
  - Skin disorder [Unknown]
  - Alopecia [Unknown]
  - Fatigue [Unknown]
  - Musculoskeletal stiffness [Unknown]
  - Blood triglycerides increased [Unknown]
  - Illness [Unknown]
  - Fall [Unknown]
  - Head injury [Unknown]
  - Oedema peripheral [Unknown]
  - Muscle spasms [Unknown]
  - Dehydration [Unknown]
  - Urticaria [Unknown]
  - Dyspnoea [Unknown]
  - Amnesia [Unknown]
  - Housebound [Unknown]
  - Pruritus [Unknown]

NARRATIVE: CASE EVENT DATE: 20160805
